FAERS Safety Report 7557485-1 (Version None)
Quarter: 2011Q2

REPORT INFORMATION
  Report Type: 
  Country: None (occurrence: None)
  Receive Date: 20110620
  Receipt Date: 20110607
  Transmission Date: 20111010
  Serious: Yes (Other)
  Sender: FDA-Public Use
  Company Number: US-JNJFOC-20110607979

PATIENT
  Sex: Female
  Weight: 79.38 kg

DRUGS (2)
  1. ORTHO-NOVUM [Suspect]
     Indication: MUSCLE SPASMS
     Route: 048
  2. ORTHO-NOVUM [Suspect]
     Indication: CONTRACEPTION
     Route: 048

REACTIONS (3)
  - HYPERSEXUALITY [None]
  - MENORRHAGIA [None]
  - SMEAR CERVIX ABNORMAL [None]
